FAERS Safety Report 5593989-9 (Version None)
Quarter: 2007Q4

REPORT INFORMATION
  Report Type: 
  Country: None (occurrence: None)
  Receive Date: 20071218
  Receipt Date: 20070503
  Transmission Date: 20080405
  Serious: Yes (Hospitalization, Other)
  Sender: FDA-Public Use
  Company Number: 2007036308

PATIENT
  Age: 75 Year
  Sex: Female

DRUGS (1)
  1. BEXTRA [Suspect]
     Indication: ARTHRITIS

REACTIONS (1)
  - ARRHYTHMIA [None]
